FAERS Safety Report 8834724 (Version 1)
Quarter: 2012Q4

REPORT INFORMATION
  Report Type: Spontaneous
  Country: LB (occurrence: None)
  Receive Date: 20121009
  Receipt Date: 20121009
  Transmission Date: 20130627
  Serious: Yes (Other)
  Sender: FDA-Public Use
  Company Number: B0834759A

PATIENT
  Age: 16 Year
  Sex: Female

DRUGS (3)
  1. CLOBETASOL PROPIONATE [Suspect]
     Indication: DERMATITIS EXFOLIATIVE
     Route: 061
  2. ISOTRETINOIN [Suspect]
     Indication: PRODUCT USED FOR UNKNOWN INDICATION
     Route: 048
  3. CORTICOSTEROID [Suspect]
     Indication: DERMATITIS EXFOLIATIVE
     Route: 061

REACTIONS (6)
  - Cushing^s syndrome [None]
  - Dermatitis exfoliative [None]
  - Alopecia [None]
  - Netherton^s syndrome [None]
  - Condition aggravated [None]
  - Drug ineffective [None]
